FAERS Safety Report 21952445 (Version 1)
Quarter: 2023Q1

REPORT INFORMATION
  Report Type: Spontaneous
  Country: AU (occurrence: AU)
  Receive Date: 20230203
  Receipt Date: 20230203
  Transmission Date: 20230417
  Serious: Yes (Other)
  Sender: FDA-Public Use
  Company Number: AU-CIPLA LTD.-2023AU00458

PATIENT

DRUGS (5)
  1. PREGABALIN [Suspect]
     Active Substance: PREGABALIN
     Indication: Temporal lobe epilepsy
     Dosage: 300 MILLIGRAM, QD
     Route: 065
  2. VALPROATE SODIUM [Suspect]
     Active Substance: VALPROATE SODIUM
     Indication: Temporal lobe epilepsy
     Dosage: 2 GRAM, QD
     Route: 065
  3. ZONISAMIDE [Suspect]
     Active Substance: ZONISAMIDE
     Indication: Temporal lobe epilepsy
     Dosage: 200 MILLIGRAM, QD
     Route: 065
  4. VIMPAT [Suspect]
     Active Substance: LACOSAMIDE
     Indication: Temporal lobe epilepsy
     Dosage: 200 MILLIGRAM, QD
     Route: 065
  5. MIRTAZAPINE [Suspect]
     Active Substance: MIRTAZAPINE
     Indication: Temporal lobe epilepsy
     Dosage: 15 MILLIGRAM, QD
     Route: 065

REACTIONS (8)
  - Drug ineffective for unapproved indication [Unknown]
  - Automatism [Unknown]
  - Behaviour disorder [Unknown]
  - Seizure [Unknown]
  - Sinus bradycardia [Unknown]
  - Cardiac arrest [Unknown]
  - Condition aggravated [Unknown]
  - Off label use [Unknown]
